FAERS Safety Report 5140432-X (Version None)
Quarter: 2006Q4

REPORT INFORMATION
  Report Type: 
  Country: None (occurrence: None)
  Receive Date: 20061026
  Receipt Date: 20061026
  Transmission Date: 20070319
  Serious: Yes (Hospitalization, Other)
  Sender: FDA-Public Use
  Company Number: None

PATIENT
  Sex: Male
  Weight: 98.6 kg

DRUGS (21)
  1. CASPOFUNGIN [Suspect]
     Indication: CANDIDA PNEUMONIA
     Dosage: 50MG  DAILY  IV
     Route: 042
     Dates: start: 20061018, end: 20061022
  2. ACETAMINOPHEN [Concomitant]
  3. ALBUTEROL [Concomitant]
  4. BISACODYL [Concomitant]
  5. CYCLOSPORINE [Concomitant]
  6. DOCUSATE [Concomitant]
  7. FAMOTIDINE [Concomitant]
  8. FERROUS SULFATE TAB [Concomitant]
  9. FUROSEMIDE [Concomitant]
  10. HEPARIN [Concomitant]
  11. HYDROCORTISONE [Concomitant]
  12. REGULAR INSULIN [Concomitant]
  13. IPRATROPIUM BROMIDE [Concomitant]
  14. LEVALBUTEROL HCL [Concomitant]
  15. METOPROLOL TARTRATE [Concomitant]
  16. MIDAZOLAM /NACL [Concomitant]
  17. MORPHINE [Concomitant]
  18. MYCOPHENOLATE MOFETIL [Concomitant]
  19. PRAVASTATIN [Concomitant]
  20. SERTRALINE [Concomitant]
  21. SODIUM CHLORIDE [Concomitant]

REACTIONS (1)
  - HAEMATOCRIT DECREASED [None]
